FAERS Safety Report 6933202-0 (Version None)
Quarter: 2010Q3

REPORT INFORMATION
  Report Type: 
  Country: None (occurrence: None)
  Receive Date: 20100820
  Receipt Date: 20100812
  Transmission Date: 20110219
  Serious: Yes (Hospitalization)
  Sender: FDA-Public Use
  Company Number: GR-SHIRE-SPV1-2010-01418

PATIENT

DRUGS (5)
  1. MESALAMINE [Suspect]
     Indication: COLITIS ULCERATIVE
  2. AZATHIOPRINE [Suspect]
     Indication: COLITIS ULCERATIVE
  3. CORTICOSTEROIDS [Suspect]
     Indication: COLITIS ULCERATIVE
  4. ZOVIMAX [Concomitant]
     Indication: MENINGITIS BACTERIAL
     Dosage: 750 MG, 3X/DAY:TID
     Route: 042
  5. GENTAMICIN [Concomitant]
     Indication: MENINGITIS BACTERIAL
     Dosage: 80 MG, 3X/DAY:TID
     Route: 042

REACTIONS (1)
  - MENINGITIS BACTERIAL [None]
